FAERS Safety Report 4484225-5 (Version None)
Quarter: 2004Q4

REPORT INFORMATION
  Report Type: 
  Country: None (occurrence: None)
  Receive Date: 20041025
  Receipt Date: 20040722
  Transmission Date: 20050328
  Serious: Yes (Other)
  Sender: FDA-Public Use
  Company Number: 2004-03238

PATIENT
  Sex: Female
  Weight: 67.3 kg

DRUGS (3)
  1. WELLBUTRIN SR [Suspect]
     Indication: DEPRESSION
     Dosage: 150MG PER DAY
  2. BUPROPION HYDROCHLORIDE [Suspect]
     Indication: DEPRESSION
     Dosage: 150MG TWICE PER DAY
     Route: 048
     Dates: start: 20040617
  3. LITHIUM [Concomitant]
     Indication: BIPOLAR DISORDER
     Route: 048

REACTIONS (7)
  - ASTHENIA [None]
  - COORDINATION ABNORMAL [None]
  - DEPRESSED LEVEL OF CONSCIOUSNESS [None]
  - DISTURBANCE IN ATTENTION [None]
  - MOTOR DYSFUNCTION [None]
  - PHARMACEUTICAL PRODUCT COMPLAINT [None]
  - TREMOR [None]
